FAERS Safety Report 16418377 (Version 1)
Quarter: 2019Q2

REPORT INFORMATION
  Report Type: Spontaneous
  Country: US (occurrence: US)
  Receive Date: 20190612
  Receipt Date: 20190612
  Transmission Date: 20190711
  Serious: No
  Sender: FDA-Public Use
  Company Number: US-TEVA-2019-US-1054563

PATIENT

DRUGS (1)
  1. NORTRIPTYLINE HYDROCHLORIDE TEVA [Suspect]
     Active Substance: NORTRIPTYLINE HYDROCHLORIDE

REACTIONS (3)
  - Anxiety [Not Recovered/Not Resolved]
  - Depression [Not Recovered/Not Resolved]
  - Product quality issue [Unknown]
